FAERS Safety Report 8493975-5 (Version None)
Quarter: 2012Q3

REPORT INFORMATION
  Report Type: 
  Country: None (occurrence: None)
  Receive Date: 20120709
  Receipt Date: 20120627
  Transmission Date: 20120928
  Serious: Yes (Hospitalization)
  Sender: FDA-Public Use
  Company Number: GB-BIOGENIDEC-2012BI014193

PATIENT
  Sex: Female

DRUGS (6)
  1. TYSABRI [Suspect]
     Indication: RELAPSING-REMITTING MULTIPLE SCLEROSIS
     Dates: start: 20120320
  2. ORLISTAT [Concomitant]
  3. SOLIFENACIN SUCCINATE [Concomitant]
  4. TRAMADOL HCL [Concomitant]
  5. GABAPENTIN [Concomitant]
  6. MIRENA [Concomitant]

REACTIONS (2)
  - MUSCULOSKELETAL CHEST PAIN [None]
  - INFUSION RELATED REACTION [None]
